FAERS Safety Report 4518973-5 (Version None)
Quarter: 2004Q4

REPORT INFORMATION
  Report Type: 
  Country: None (occurrence: None)
  Receive Date: 20041203
  Receipt Date: 20041203
  Transmission Date: 20050328
  Serious: No
  Sender: FDA-Public Use
  Company Number: None

PATIENT
  Age: 60 Year
  Sex: Female
  Weight: 88.4514 kg

DRUGS (1)
  1. NAFCILLIN SODIUM [Suspect]
     Indication: OSTEOMYELITIS
     Dosage: 2 GRAMS   EVERY 4 HOURS  INTRAVENOUS
     Route: 042
     Dates: start: 20041108, end: 20041130

REACTIONS (1)
  - RENAL IMPAIRMENT [None]
